FAERS Safety Report 15413749 (Version 1)
Quarter: 2018Q3

REPORT INFORMATION
  Report Type: Spontaneous
  Country: TR (occurrence: TR)
  Receive Date: 20180921
  Receipt Date: 20180921
  Transmission Date: 20181010
  Serious: Yes (Other)
  Sender: FDA-Public Use
  Company Number: PHHY2018TR097741

PATIENT
  Age: 38 Year
  Sex: Female

DRUGS (1)
  1. IMATINIB [Suspect]
     Active Substance: IMATINIB
     Indication: CHORDOMA
     Dosage: 400 MG, QD
     Route: 065
     Dates: start: 201504

REACTIONS (6)
  - Malignant neoplasm progression [Unknown]
  - Rash [Unknown]
  - Nausea [Unknown]
  - Product use in unapproved indication [Unknown]
  - Chordoma [Unknown]
  - Periorbital oedema [Unknown]

NARRATIVE: CASE EVENT DATE: 2017
